FAERS Safety Report 4802168-1 (Version None)
Quarter: 2005Q4

REPORT INFORMATION
  Report Type: 
  Country: None (occurrence: None)
  Receive Date: 20051017
  Receipt Date: 20051017
  Transmission Date: 20060501
  Serious: Yes (Disabling)
  Sender: FDA-Public Use
  Company Number: None

PATIENT
  Age: 56 Year
  Sex: Male
  Weight: 88.4514 kg

DRUGS (1)
  1. ZICAM DOES NOT SAY ON THE BOTTLE MATRIXX [Suspect]
     Indication: NASOPHARYNGITIS
     Dosage: ONE SPRAY IN EACH NOSTRIL 1X NASAL
     Route: 045
     Dates: start: 20041226, end: 20041226

REACTIONS (1)
  - ANOSMIA [None]
